FAERS Safety Report 4327494-4 (Version None)
Quarter: 2004Q1

REPORT INFORMATION
  Report Type: 
  Country: None (occurrence: None)
  Receive Date: 20040325
  Receipt Date: 20040311
  Transmission Date: 20041129
  Serious: Yes (Other)
  Sender: FDA-Public Use
  Company Number: 2004-UK-00245UK

PATIENT
  Sex: Male

DRUGS (1)
  1. NEVIRAPINE (EU/1/97/055/001) (NEVIRAPINE) [Suspect]

REACTIONS (1)
  - PULMONARY HYPERTENSION [None]
